FAERS Safety Report 6590277-9 (Version None)
Quarter: 2010Q1

REPORT INFORMATION
  Report Type: 
  Country: None (occurrence: None)
  Receive Date: 20100219
  Receipt Date: 20100209
  Transmission Date: 20100710
  Serious: Yes (Hospitalization)
  Sender: FDA-Public Use
  Company Number: PHHY2010FR07915

PATIENT
  Sex: Female

DRUGS (2)
  1. RITALIN [Suspect]
     Dosage: 40 MG, QD
     Route: 048
     Dates: start: 20091023, end: 20100120
  2. YASMIN [Concomitant]
     Indication: CONTRACEPTION
     Dosage: 0.02/3 MG
     Route: 048
     Dates: start: 20091201, end: 20100120

REACTIONS (4)
  - PAIN IN EXTREMITY [None]
  - PARAESTHESIA [None]
  - PERIPHERAL ISCHAEMIA [None]
  - RAYNAUD'S PHENOMENON [None]
